FAERS Safety Report 5944685-7 (Version None)
Quarter: 2008Q4

REPORT INFORMATION
  Report Type: 
  Country: None (occurrence: None)
  Receive Date: 20081107
  Receipt Date: 20081028
  Transmission Date: 20090506
  Serious: Yes (Other)
  Sender: FDA-Public Use
  Company Number: GB-JNJFOC-20081007394

PATIENT
  Age: 64 Year
  Sex: Male
  Weight: 34.47 kg

DRUGS (3)
  1. REMICADE [Suspect]
     Indication: RHEUMATOID ARTHRITIS
     Route: 042
  2. METHOTREXATE [Suspect]
     Indication: RHEUMATOID ARTHRITIS
     Route: 048
  3. DICLOFENAC [Concomitant]
     Route: 048

REACTIONS (3)
  - AORTIC ANEURYSM [None]
  - HYDRONEPHROSIS [None]
  - RETROPERITONEAL FIBROSIS [None]
